FAERS Safety Report 4354509-X (Version None)
Quarter: 2004Q2

REPORT INFORMATION
  Report Type: 
  Country: None (occurrence: None)
  Receive Date: 20040503
  Receipt Date: 20040331
  Transmission Date: 20050107
  Serious: Yes (Other)
  Sender: FDA-Public Use
  Company Number: M04-341-038

PATIENT
  Age: 77 Year
  Sex: Male
  Weight: 82 kg

DRUGS (6)
  1. VELCADE [Suspect]
     Indication: MULTIPLE MYELOMA
     Dosage: 2.66  MG, BIW DAYS 1,4,8 AND 11: INTRAVENOUS (NO OTHERWISE SPECIFIED)
     Route: 042
     Dates: start: 20030707, end: 20030828
  2. COMPAZINE [Concomitant]
  3. LORAZEPAM [Concomitant]
  4. NORVASC [Concomitant]
  5. TENORMIN [Concomitant]
  6. ZOMETA [Concomitant]

REACTIONS (2)
  - NEUROPATHY [None]
  - VITAMIN B12 DEFICIENCY [None]
